FAERS Safety Report 5013701-1 (Version None)
Quarter: 2006Q2

REPORT INFORMATION
  Report Type: 
  Country: None (occurrence: None)
  Receive Date: 20060530
  Receipt Date: 20050622
  Transmission Date: 20061013
  Serious: Yes (Hospitalization)
  Sender: FDA-Public Use
  Company Number: DE-BRISTOL-MYERS SQUIBB COMPANY-13373360

PATIENT
  Age: 24 Hour
  Sex: Male

DRUGS (4)
  1. REYATAZ [Suspect]
     Dosage: ONGOING AT CONCEPTION
     Route: 064
     Dates: end: 20050409
  2. VIDEX EC [Suspect]
     Dosage: ONGOING AT CONCEPTION
     Route: 064
     Dates: end: 20050409
  3. VIREAD [Suspect]
     Dosage: ONGOING AT CONCEPTION
     Route: 064
     Dates: end: 20050409
  4. VIRAMUNE [Suspect]
     Route: 064
     Dates: end: 20050409

REACTIONS (1)
  - PREMATURE BABY [None]
